FAERS Safety Report 18625143 (Version 2)
Quarter: 2020Q4

REPORT INFORMATION
  Report Type: Spontaneous
  Country: NA (occurrence: NA)
  Receive Date: 20201217
  Receipt Date: 20201229
  Transmission Date: 20210114
  Serious: Yes (Hospitalization, Other)
  Sender: FDA-Public Use
  Company Number: ZA-ADVANZ PHARMA-202012010813

PATIENT

DRUGS (1)
  1. ALFUZOSIN [Suspect]
     Active Substance: ALFUZOSIN
     Indication: MUSCLE RELAXANT THERAPY
     Dosage: UNKNOWN,  XATRAL XL PROLONGED-RELEASE TABLET
     Route: 065

REACTIONS (6)
  - Cerebellar infarction [Unknown]
  - Cerebellar stroke [Unknown]
  - Fine motor skill dysfunction [Unknown]
  - Gait inability [Unknown]
  - Hypercholesterolaemia [Unknown]
  - Balance disorder [Unknown]
